FAERS Safety Report 15136053 (Version 1)
Quarter: 2018Q3

REPORT INFORMATION
  Report Type: Spontaneous
  Country: US (occurrence: US)
  Receive Date: 20180617
  Receipt Date: 20180617
  Transmission Date: 20181010
  Serious: Yes (Life-Threatening, Other)
  Sender: FDA-Public Use
  Company Number: None

PATIENT
  Age: 45 Year
  Sex: Female
  Weight: 81.65 kg

DRUGS (2)
  1. MULTI VITAMIN [Concomitant]
     Active Substance: VITAMINS
  2. MULTIHANCE [Suspect]
     Active Substance: GADOBENATE DIMEGLUMINE

REACTIONS (9)
  - Apparent death [None]
  - Malaise [None]
  - Erythema [None]
  - Skin burning sensation [None]
  - Hypoaesthesia [None]
  - Rash [None]
  - Quality of life decreased [None]
  - Arthralgia [None]
  - Palpitations [None]
